FAERS Safety Report 5048473-8 (Version None)
Quarter: 2006Q3

REPORT INFORMATION
  Report Type: 
  Country: None (occurrence: None)
  Receive Date: 20060705
  Receipt Date: 20060621
  Transmission Date: 20061208
  Serious: Yes (Other)
  Sender: FDA-Public Use
  Company Number: 200610687BYL

PATIENT
  Age: 52 Year
  Sex: Female

DRUGS (4)
  1. AVELOX [Suspect]
     Indication: BRONCHITIS
     Dosage: 400 MG, QD, ORAL
     Route: 048
     Dates: start: 20060502
  2. PL GRAN. [Concomitant]
  3. MUCOSOLVAN [Concomitant]
  4. MUCOSTA [Concomitant]

REACTIONS (3)
  - HYPOAESTHESIA [None]
  - NAUSEA [None]
  - RESPIRATORY RATE INCREASED [None]
